FAERS Safety Report 7314022-4 (Version None)
Quarter: 2011Q1

REPORT INFORMATION
  Report Type: 
  Country: None (occurrence: None)
  Receive Date: 20110225
  Receipt Date: 20110214
  Transmission Date: 20110831
  Serious: Yes (Death, Other)
  Sender: FDA-Public Use
  Company Number: JP-SANOFI-AVENTIS-2010SA076233

PATIENT
  Age: 61 Year
  Sex: Female
  Weight: 41 kg

DRUGS (19)
  1. CALCIUM LEVOFOLINATE [Concomitant]
     Indication: LARGE INTESTINE CARCINOMA
     Route: 041
     Dates: start: 20101115, end: 20101115
  2. CALCIUM LEVOFOLINATE [Concomitant]
     Route: 041
     Dates: start: 20101208, end: 20101208
  3. 5-FU [Concomitant]
     Route: 040
     Dates: start: 20101115, end: 20101115
  4. CALCICOL [Concomitant]
     Indication: PREMEDICATION
     Route: 041
     Dates: start: 20101115, end: 20101208
  5. MAGNESIUM OXIDE [Concomitant]
     Dates: start: 20101112
  6. MAGNESIUM SULFATE [Concomitant]
     Indication: PREMEDICATION
     Route: 041
     Dates: start: 20101115, end: 20101208
  7. SOLDEM 3A [Concomitant]
     Indication: MALAISE
     Dosage: TID, BID, SID
     Route: 041
     Dates: start: 20101117, end: 20101126
  8. FERROUS CITRATE [Concomitant]
     Dates: start: 20101025
  9. DEXAMETHASONE [Concomitant]
     Dates: start: 20101208, end: 20101209
  10. ELPLAT [Suspect]
     Route: 041
     Dates: start: 20101208, end: 20101208
  11. FENTANYL [Concomitant]
     Dates: start: 20101108
  12. OXINORM [Concomitant]
  13. ELPLAT [Suspect]
     Indication: LARGE INTESTINE CARCINOMA
     Route: 041
     Dates: start: 20101115, end: 20101115
  14. 5-FU [Concomitant]
     Route: 041
     Dates: start: 20101115, end: 20101116
  15. 5-FU [Concomitant]
     Route: 040
     Dates: start: 20101208, end: 20101208
  16. 5-FU [Concomitant]
     Route: 041
     Dates: start: 20101208, end: 20101209
  17. TAKEPRON [Concomitant]
     Dates: start: 20101020
  18. EMEND [Concomitant]
     Dates: start: 20101208
  19. BEVACIZUMAB [Suspect]
     Indication: LARGE INTESTINE CARCINOMA
     Route: 041
     Dates: start: 20101208, end: 20101208

REACTIONS (2)
  - BLOOD POTASSIUM INCREASED [None]
  - DEATH [None]
